FAERS Safety Report 14646146 (Version 1)
Quarter: 2018Q1

REPORT INFORMATION
  Report Type: Report from Study
  Country: US (occurrence: US)
  Receive Date: 20180316
  Receipt Date: 20180316
  Transmission Date: 20180509
  Serious: Yes (Hospitalization)
  Sender: FDA-Public Use
  Company Number: US-ROCHE-2075484

PATIENT
  Sex: Male
  Weight: 77.63 kg

DRUGS (1)
  1. ESBRIET [Suspect]
     Active Substance: PIRFENIDONE
     Indication: IDIOPATHIC PULMONARY FIBROSIS
     Dosage: 3 CAPS THREE TIMES A DAY ;ONGOING: YES
     Route: 065
     Dates: start: 20160824

REACTIONS (1)
  - Cholecystitis [Recovered/Resolved]
